FAERS Safety Report 6081526-4 (Version None)
Quarter: 2009Q1

REPORT INFORMATION
  Report Type: 
  Country: None (occurrence: None)
  Receive Date: 20090218
  Receipt Date: 20090203
  Transmission Date: 20090719
  Serious: Yes (Death, Hospitalization, Other)
  Sender: FDA-Public Use
  Company Number: BR-PFIZER INC-2008032439

PATIENT

DRUGS (8)
  1. MARAVIROC [Suspect]
     Indication: HIV INFECTION
     Route: 048
     Dates: start: 20080225, end: 20080409
  2. AMPHOTERICIN B [Concomitant]
  3. MEGESTROL ACETATE [Concomitant]
     Route: 048
     Dates: start: 20070828, end: 20080409
  4. TENOFOVIR [Concomitant]
     Route: 048
     Dates: start: 20071003, end: 20080409
  5. LAMIVUDINE [Concomitant]
     Route: 048
     Dates: start: 20071003, end: 20080409
  6. EFAVIRENZ [Concomitant]
     Route: 048
     Dates: start: 20071003, end: 20080409
  7. FOSAMPRENAVIR [Concomitant]
     Route: 048
     Dates: start: 20071003, end: 20080409
  8. RITONAVIR [Concomitant]
     Route: 048
     Dates: start: 20071003, end: 20080409

REACTIONS (3)
  - CRYPTOCOCCOSIS [None]
  - NEPHROPATHY TOXIC [None]
  - RENAL FAILURE ACUTE [None]
